FAERS Safety Report 7459514-2 (Version None)
Quarter: 2011Q2

REPORT INFORMATION
  Report Type: 
  Country: None (occurrence: None)
  Receive Date: 20110505
  Receipt Date: 20110503
  Transmission Date: 20111010
  Serious: No
  Sender: FDA-Public Use
  Company Number: US-PFIZER INC-2011095568

PATIENT
  Sex: Female

DRUGS (2)
  1. PREMARIN [Suspect]
     Dosage: UNK
     Dates: start: 20080101
  2. LIPITOR [Concomitant]
     Indication: BLOOD CHOLESTEROL INCREASED
     Dosage: 20 MG, 1X/DAY
     Route: 048

REACTIONS (2)
  - INCREASED APPETITE [None]
  - BLOOD OESTROGEN INCREASED [None]
